FAERS Safety Report 22393507 (Version 10)
Quarter: 2024Q3

REPORT INFORMATION
  Report Type: Spontaneous
  Country: US (occurrence: US)
  Receive Date: 20230601
  Receipt Date: 20240709
  Transmission Date: 20241016
  Serious: No
  Sender: PFIZER
  Company Number: US-PFIZER INC-PV202300096519

PATIENT
  Age: 15 Year
  Sex: Male

DRUGS (2)
  1. GENOTROPIN [Suspect]
     Active Substance: SOMATROPIN
     Indication: Blood growth hormone decreased
     Dosage: 2.4 MG ALTERNATE WITH 2.6 MG EVERY DAY, 7 DAYS A WEEK
     Dates: start: 202304
  2. GENOTROPIN [Suspect]
     Active Substance: SOMATROPIN
     Dosage: 2.4 MG ALTERNATE WITH 2.6 MG EVERY DAY, 7 DAYS A WEEK
     Dates: start: 202305

REACTIONS (8)
  - Injection site pain [Not Recovered/Not Resolved]
  - Rash macular [Recovered/Resolved]
  - Rash erythematous [Recovered/Resolved]
  - Injection site discomfort [Not Recovered/Not Resolved]
  - Device information output issue [Unknown]
  - Device mechanical issue [Unknown]
  - Device leakage [Unknown]
  - Product communication issue [Unknown]

NARRATIVE: CASE EVENT DATE: 20230101
